FAERS Safety Report 19406923 (Version 1)
Quarter: 2021Q2

REPORT INFORMATION
  Report Type: Spontaneous
  Country: BR (occurrence: BR)
  Receive Date: 20210611
  Receipt Date: 20210611
  Transmission Date: 20210717
  Serious: Yes (Hospitalization)
  Sender: FDA-Public Use
  Company Number: BR-NOVOPROD-818813

PATIENT
  Age: 74 Year
  Sex: Male
  Weight: 80 kg

DRUGS (7)
  1. ROSUVASTATIN. [Concomitant]
     Active Substance: ROSUVASTATIN
  2. ASA [Concomitant]
     Active Substance: ASPIRIN
  3. EZETIMIBE. [Concomitant]
     Active Substance: EZETIMIBE
  4. JARDIANCE [Concomitant]
     Active Substance: EMPAGLIFLOZIN
  5. GLIFAGE XR [Concomitant]
     Active Substance: METFORMIN HYDROCHLORIDE
  6. XULTOPHY 100/3.6 [Suspect]
     Active Substance: INSULIN DEGLUDEC\LIRAGLUTIDE
     Indication: TYPE 2 DIABETES MELLITUS
     Dosage: UNK
     Route: 065
  7. ENALAPRIL [Concomitant]
     Active Substance: ENALAPRIL
     Dosage: 5 MG 1X DAILY.

REACTIONS (2)
  - Dyspepsia [Unknown]
  - Coronary artery bypass [Recovered/Resolved]

NARRATIVE: CASE EVENT DATE: 20210317
